FAERS Safety Report 9641952 (Version 1)
Quarter: 2013Q4

REPORT INFORMATION
  Report Type: Spontaneous
  Country: DE (occurrence: DE)
  Receive Date: 20131023
  Receipt Date: 20131023
  Transmission Date: 20140711
  Serious: Yes (Congenital Anomaly)
  Sender: FDA-Public Use
  Company Number: DE-MYLANLABS-2013S1023020

PATIENT
  Sex: Female
  Weight: 1.72 kg

DRUGS (4)
  1. LAMOTRIGIN [Suspect]
     Dosage: 100 [MG/D ]
     Route: 064
     Dates: start: 20071221, end: 20080802
  2. PAROXETIN [Suspect]
     Dosage: 40 [MG/D ]
     Route: 064
     Dates: start: 20071221, end: 20080802
  3. CHLORPROTHIXENE [Concomitant]
     Dosage: 60 [MG/D ]
     Route: 064
     Dates: start: 20071221, end: 20080201
  4. FOLIO FORTE [Concomitant]
     Dosage: 0.8 [MG/D ]
     Route: 064
     Dates: start: 20080126, end: 20080802

REACTIONS (6)
  - Atrial septal defect [Unknown]
  - Ventricular septal defect [Unknown]
  - Exposure during pregnancy [Unknown]
  - Jaundice [Unknown]
  - Anaemia [Unknown]
  - Premature baby [Unknown]
